FAERS Safety Report 5414007-9 (Version None)
Quarter: 2007Q3

REPORT INFORMATION
  Report Type: 
  Country: None (occurrence: None)
  Receive Date: 20070713
  Receipt Date: 20070417
  Transmission Date: 20080115
  Serious: Yes (Hospitalization)
  Sender: FDA-Public Use
  Company Number: US-JNJFOC-20061005036

PATIENT
  Age: 42 Year
  Sex: Female
  Weight: 136.5327 kg

DRUGS (7)
  1. ORTHO EVRA [Suspect]
     Indication: VAGINAL HAEMORRHAGE
     Dosage: TRANSDERMAL
     Route: 062
     Dates: start: 20040101, end: 20050901
  2. ULTRAM [Concomitant]
  3. NEXIUM [Concomitant]
  4. POTASSIUM CHLORIDE [Concomitant]
  5. MOTRIN [Concomitant]
  6. ZYRTEC [Concomitant]
  7. MAXIDE (DYAZIDE) [Concomitant]

REACTIONS (2)
  - RENAL VEIN THROMBOSIS [None]
  - SUPERIOR SAGITTAL SINUS THROMBOSIS [None]
